FAERS Safety Report 17611506 (Version 3)
Quarter: 2020Q2

REPORT INFORMATION
  Report Type: Report from Study
  Country: FR (occurrence: FR)
  Receive Date: 20200401
  Receipt Date: 20200505
  Transmission Date: 20200713
  Serious: Yes (Death, Disabling, Other)
  Sender: FDA-Public Use
  Company Number: FR-TAKEDA-2020TUS016597

PATIENT
  Sex: Female
  Weight: 114 kg

DRUGS (10)
  1. VALACICLOVIR [Concomitant]
     Active Substance: VALACYCLOVIR HYDROCHLORIDE
     Indication: PROPHYLAXIS
     Dosage: 500 MILLIGRAM
     Route: 065
  2. AMIODARONE [Concomitant]
     Active Substance: AMIODARONE
     Indication: ATRIAL FIBRILLATION
     Dosage: 200 MILLIGRAM
     Route: 065
  3. BISOPROLOL [Concomitant]
     Active Substance: BISOPROLOL
     Indication: HYPERTENSION
     Dosage: UNK
     Route: 065
  4. IXAZOMIB [Suspect]
     Active Substance: IXAZOMIB
     Indication: PLASMA CELL MYELOMA
     Dosage: UNK
     Route: 065
  5. POMALIDOMIDE [Suspect]
     Active Substance: POMALIDOMIDE
     Indication: PLASMA CELL MYELOMA
     Dosage: 4 MILLIGRAM
     Route: 065
     Dates: start: 20190812, end: 20191009
  6. LERCANIDIPINE [Concomitant]
     Active Substance: LERCANIDIPINE
     Indication: HYPERTENSION
     Dosage: 20 MILLIGRAM
     Route: 065
  7. FUROSEMIDE. [Concomitant]
     Active Substance: FUROSEMIDE
     Indication: HYPERTENSION
     Dosage: 20 MILLIGRAM
     Route: 065
  8. RILMENIDINE [Concomitant]
     Active Substance: RILMENIDINE
     Indication: PRODUCT USED FOR UNKNOWN INDICATION
     Dosage: 1 GRAM
     Route: 065
  9. CANDESARTAN. [Concomitant]
     Active Substance: CANDESARTAN
     Indication: HYPERTENSION
     Dosage: 16 MILLIGRAM
     Route: 065
  10. VENLAFAXINE [Concomitant]
     Active Substance: VENLAFAXINE HYDROCHLORIDE
     Indication: DEPRESSION
     Dosage: UNK
     Route: 065

REACTIONS (4)
  - Acute pulmonary oedema [Fatal]
  - Acute respiratory distress syndrome [Fatal]
  - Pneumonia [Fatal]
  - Pyoderma gangrenosum [Fatal]

NARRATIVE: CASE EVENT DATE: 20190910
